FAERS Safety Report 4408207-4 (Version None)
Quarter: 2004Q3

REPORT INFORMATION
  Report Type: 
  Country: None (occurrence: None)
  Receive Date: 20040722
  Receipt Date: 20040715
  Transmission Date: 20050211
  Serious: Yes (Hospitalization)
  Sender: FDA-Public Use
  Company Number: 2003173892DE

PATIENT
  Age: 63 Year
  Sex: Female
  Weight: 77 kg

DRUGS (1)
  1. FARMORUBICINA(EPIRUBICIN HYDROCHLORIDE) POWDER, STERILE [Suspect]
     Indication: BREAST CANCER
     Dosage: 220 MG, QD (3RD CYCLE), IV
     Route: 042
     Dates: start: 20030811, end: 20030811

REACTIONS (5)
  - GENERAL PHYSICAL HEALTH DETERIORATION [None]
  - MALAISE [None]
  - MUCOSAL INFLAMMATION [None]
  - NAUSEA [None]
  - VOMITING [None]
